FAERS Safety Report 5319120-2 (Version None)
Quarter: 2007Q2

REPORT INFORMATION
  Report Type: 
  Country: None (occurrence: None)
  Receive Date: 20070508
  Receipt Date: 20070427
  Transmission Date: 20071010
  Serious: Yes (Hospitalization)
  Sender: FDA-Public Use
  Company Number: B0469248A

PATIENT
  Age: 5 Year
  Sex: Female
  Weight: 20 kg

DRUGS (8)
  1. LANVIS [Suspect]
     Dosage: 46MG PER DAY
     Route: 048
     Dates: start: 20070130, end: 20070219
  2. ZOFRAN [Suspect]
     Dosage: 4MG CYCLIC
     Route: 048
     Dates: start: 20070130, end: 20070215
  3. CYTARABINE [Concomitant]
     Dosage: 23.2MG CYCLIC
     Route: 058
     Dates: start: 20070130, end: 20070215
  4. ETOPOPHOS [Concomitant]
     Dosage: 115MG PER DAY
     Route: 042
     Dates: start: 20070130, end: 20070214
  5. LEDERTREXATE [Concomitant]
     Indication: PROPHYLAXIS
     Dosage: 12MG PER DAY
     Route: 065
     Dates: start: 20070131, end: 20070131
  6. FORTUM [Concomitant]
     Route: 065
     Dates: start: 20070218, end: 20070224
  7. AMIKLIN [Concomitant]
     Dates: start: 20070218, end: 20070220
  8. TARGOCID [Concomitant]
     Dates: start: 20070219, end: 20070224

REACTIONS (5)
  - ABDOMINAL DISTENSION [None]
  - ASCITES [None]
  - HEPATOMEGALY [None]
  - OEDEMA PERIPHERAL [None]
  - TRANSAMINASES INCREASED [None]
